FAERS Safety Report 4900089-7 (Version None)
Quarter: 2006Q1

REPORT INFORMATION
  Report Type: 
  Country: None (occurrence: None)
  Receive Date: 20060131
  Receipt Date: 20060118
  Transmission Date: 20060701
  Serious: Yes (Other)
  Sender: FDA-Public Use
  Company Number: 2006009746

PATIENT
  Age: 55 Year
  Sex: Female
  Weight: 58.9676 kg

DRUGS (1)
  1. DEPO-ESTRADIOL [Suspect]
     Indication: HORMONE REPLACEMENT THERAPY
     Dosage: (5MG) INTRAMUSCULAR 5 YEARS AGO
     Route: 030
     Dates: end: 20050101

REACTIONS (3)
  - SKIN NECROSIS [None]
  - STAPHYLOCOCCAL ABSCESS [None]
  - SUBCUTANEOUS ABSCESS [None]
